FAERS Safety Report 10498139 (Version 5)
Quarter: 2014Q4

REPORT INFORMATION
  Report Type: Report from Study
  Country: HK (occurrence: HK)
  Receive Date: 20141006
  Receipt Date: 20141205
  Transmission Date: 20150528
  Serious: Yes (Hospitalization)
  Sender: FDA-Public Use
  Company Number: HK-PFIZER INC-2014268204

PATIENT
  Age: 67 Year
  Sex: Male
  Weight: 53 kg

DRUGS (2)
  1. ENTECAVIR. [Concomitant]
     Active Substance: ENTECAVIR
     Indication: HEPATITIS VIRAL
     Dosage: UNK
     Route: 048
     Dates: start: 20130902
  2. AXITINIB [Suspect]
     Active Substance: AXITINIB
     Indication: HEPATOCELLULAR CARCINOMA
     Dosage: 5 MG, 2X/DAY
     Route: 048
     Dates: start: 20130902, end: 20140901

REACTIONS (1)
  - Abdominal infection [Recovered/Resolved with Sequelae]

NARRATIVE: CASE EVENT DATE: 20140920
